FAERS Safety Report 23904969 (Version 3)
Quarter: 2025Q3

REPORT INFORMATION
  Report Type: Spontaneous
  Country: BR (occurrence: BR)
  Receive Date: 20240527
  Receipt Date: 20250822
  Transmission Date: 20251021
  Serious: Yes (Other)
  Sender: SANDOZ
  Company Number: BR-002147023-NVSC2024BR107697

PATIENT
  Sex: Female

DRUGS (4)
  1. ANASTROZOLE [Suspect]
     Active Substance: ANASTROZOLE
     Indication: Product used for unknown indication
     Route: 065
  2. SODIUM ALGINATE [Suspect]
     Active Substance: SODIUM ALGINATE
     Indication: Product used for unknown indication
     Route: 065
  3. KISQALI [Suspect]
     Active Substance: RIBOCICLIB SUCCINATE
     Indication: Product used for unknown indication
     Route: 065
  4. LETROZOLE [Suspect]
     Active Substance: LETROZOLE
     Indication: Product used for unknown indication
     Route: 065

REACTIONS (11)
  - Metastases to bone [Recovering/Resolving]
  - Metastases to lung [Recovering/Resolving]
  - Metastases to liver [Recovering/Resolving]
  - Necrosis [Unknown]
  - Increased bronchial secretion [Unknown]
  - Discouragement [Unknown]
  - Eye irritation [Unknown]
  - Dysstasia [Unknown]
  - Movement disorder [Unknown]
  - Pain [Unknown]
  - Fatigue [Unknown]
